FAERS Safety Report 9619332 (Version 3)
Quarter: 2014Q3

REPORT INFORMATION
  Report Type: Spontaneous
  Country: FR (occurrence: FR)
  Receive Date: 20131014
  Receipt Date: 20140926
  Transmission Date: 20150326
  Serious: Yes (Other)
  Sender: FDA-Public Use
  Company Number: FR-BAYER-2013-113581

PATIENT
  Age: 42 Year
  Sex: Female
  Weight: 48 kg

DRUGS (1)
  1. MIRENA [Suspect]
     Active Substance: LEVONORGESTREL
     Dosage: 20 MCG/24HR, CONT
     Route: 015
     Dates: start: 20130318, end: 20130626

REACTIONS (11)
  - Mental disorder [Not Recovered/Not Resolved]
  - Major depression [None]
  - Nausea [None]
  - Menorrhagia [None]
  - Back pain [None]
  - Tension headache [None]
  - Vomiting [None]
  - Hepatic failure [Recovered/Resolved with Sequelae]
  - Transaminases increased [Recovered/Resolved with Sequelae]
  - Anxiety [None]
  - Chest pain [None]

NARRATIVE: CASE EVENT DATE: 20130626
